FAERS Safety Report 9996568 (Version 1)
Quarter: 2014Q1

REPORT INFORMATION
  Report Type: Spontaneous
  Country: US (occurrence: None)
  Receive Date: 20140310
  Receipt Date: 20140310
  Transmission Date: 20141002
  Serious: Yes (Life-Threatening)
  Sender: FDA-Public Use
  Company Number: None

PATIENT
  Age: 76 Year
  Sex: Male
  Weight: 46.72 kg

DRUGS (1)
  1. LISINOPRIL 40MG [Suspect]
     Indication: HYPERTENSION
     Route: 048

REACTIONS (3)
  - Dysphagia [None]
  - Palatal oedema [None]
  - Mechanical ventilation [None]
